FAERS Safety Report 6613214-7 (Version None)
Quarter: 2010Q1

REPORT INFORMATION
  Report Type: 
  Country: None (occurrence: None)
  Receive Date: 20100225
  Receipt Date: 20100210
  Transmission Date: 20100710
  Serious: No
  Sender: FDA-Public Use
  Company Number: SP1201000047

PATIENT
  Age: 68 Year
  Sex: Male
  Weight: 72.6 kg

DRUGS (5)
  1. AMITIZA [Suspect]
     Indication: CONSTIPATION
     Dosage: ORAL
     Route: 048
     Dates: start: 20100209, end: 20100209
  2. VYTORIN [Concomitant]
  3. FLOMAX (MORNIFLUMATE) [Concomitant]
  4. BENICAR [Concomitant]
  5. PROTONIX [Concomitant]

REACTIONS (1)
  - DYSPNOEA [None]
